FAERS Safety Report 24294336 (Version 1)
Quarter: 2024Q3

REPORT INFORMATION
  Report Type: Spontaneous
  Country: US (occurrence: US)
  Receive Date: 20240906
  Receipt Date: 20240906
  Transmission Date: 20241016
  Serious: No
  Sender: GLAXOSMITHKLINE
  Company Number: US-GSKCCFUS-Case-02088960_AE-115427

PATIENT
  Sex: Female

DRUGS (2)
  1. LAMICTAL [Suspect]
     Active Substance: LAMOTRIGINE
     Indication: Product used for unknown indication
     Dosage: 600 MG, QD
  2. LAMICTAL [Suspect]
     Active Substance: LAMOTRIGINE
     Dosage: 2000 MG, QD

REACTIONS (2)
  - Creatinine renal clearance increased [Unknown]
  - Exposure during pregnancy [Unknown]
